FAERS Safety Report 17311437 (Version 1)
Quarter: 2020Q1

REPORT INFORMATION
  Report Type: Spontaneous
  Country: US (occurrence: US)
  Receive Date: 20200123
  Receipt Date: 20200123
  Transmission Date: 20200409
  Serious: Yes (Hospitalization)
  Sender: FDA-Public Use
  Company Number: US-ROCHE-2223548

PATIENT
  Sex: Female
  Weight: 145.28 kg

DRUGS (5)
  1. PIOGLITAZONE HCL [Concomitant]
     Active Substance: PIOGLITAZONE
     Dosage: ONGOING: UNKNOWN
     Route: 048
     Dates: start: 20180917
  2. METFORMIN HYDROCHLORIDE. [Concomitant]
     Active Substance: METFORMIN HYDROCHLORIDE
     Dosage: ONGOING: UNKNOWN
     Route: 048
     Dates: start: 20180917
  3. ONGLYZA [Concomitant]
     Active Substance: SAXAGLIPTIN HYDROCHLORIDE
     Dosage: ONGOING: UNKNOWN
     Route: 048
     Dates: start: 20180917
  4. RITUXAN [Suspect]
     Active Substance: RITUXIMAB
     Indication: LYMPHOCYTIC LEUKAEMIA
     Route: 042
     Dates: start: 20180918
  5. FERROUS SULFATE. [Concomitant]
     Active Substance: FERROUS SULFATE
     Dosage: ONGOING: UNKNOWN
     Route: 048
     Dates: start: 20180917

REACTIONS (1)
  - Cellulitis [Unknown]
